FAERS Safety Report 4555198-1 (Version None)
Quarter: 2005Q1

REPORT INFORMATION
  Report Type: 
  Country: None (occurrence: None)
  Receive Date: 20050118
  Receipt Date: 20050111
  Transmission Date: 20050727
  Serious: Yes (Hospitalization)
  Sender: FDA-Public Use
  Company Number: US-MERCK-0501USA01010

PATIENT
  Age: 55 Year
  Sex: Female

DRUGS (5)
  1. VIOXX [Suspect]
     Indication: ARTHRITIS
     Route: 048
     Dates: start: 20010101, end: 20040930
  2. PAXIL [Concomitant]
     Route: 065
  3. ZESTRIL [Concomitant]
     Route: 065
  4. SYNTHROID [Concomitant]
     Route: 065
  5. DETROL LA [Concomitant]
     Route: 065

REACTIONS (1)
  - CHEST PAIN [None]
